FAERS Safety Report 19586277 (Version 3)
Quarter: 2022Q3

REPORT INFORMATION
  Report Type: Report from Study
  Country: US (occurrence: US)
  Receive Date: 20210720
  Receipt Date: 20220701
  Transmission Date: 20221026
  Serious: Yes (Other)
  Sender: FDA-Public Use
  Company Number: US-NOVARTISPH-NVSC2021US158171

PATIENT
  Sex: Female

DRUGS (1)
  1. XIIDRA [Suspect]
     Active Substance: LIFITEGRAST
     Indication: Product used for unknown indication
     Dosage: UNK, BID (OU)
     Route: 065

REACTIONS (4)
  - Hypothyroidism [Unknown]
  - Sjogren^s syndrome [Unknown]
  - Eye pain [Recovered/Resolved]
  - Keratitis [Unknown]
